FAERS Safety Report 23454532 (Version 3)
Quarter: 2024Q4

REPORT INFORMATION
  Report Type: Spontaneous
  Country: US (occurrence: US)
  Receive Date: 20240130
  Receipt Date: 20241230
  Transmission Date: 20250115
  Serious: Yes (Disabling, Other)
  Sender: AMGEN
  Company Number: US-HORIZON THERAPEUTICS-HZN-2024-000977

PATIENT
  Age: 57 Year
  Sex: Male

DRUGS (41)
  1. TEPEZZA [Suspect]
     Active Substance: TEPROTUMUMAB-TRBW
     Indication: Endocrine ophthalmopathy
     Dosage: 984 MILLIGRAM, Q3WK (FIRST INFUSION)
     Route: 042
     Dates: start: 20220128
  2. TEPEZZA [Suspect]
     Active Substance: TEPROTUMUMAB-TRBW
     Dosage: 1968 MILLIGRAM, Q3WK (SECOND INFUSION)
     Route: 040
     Dates: start: 20220218
  3. TEPEZZA [Suspect]
     Active Substance: TEPROTUMUMAB-TRBW
     Dosage: 1968 MILLIGRAM, Q3WK (THIRD INFUSION)
     Route: 040
     Dates: start: 20220315
  4. TEPEZZA [Suspect]
     Active Substance: TEPROTUMUMAB-TRBW
     Dosage: 1954 MILLIGRAM, Q3WK (FOURTH INFUSION)
     Route: 040
     Dates: start: 20220817
  5. TEPEZZA [Suspect]
     Active Substance: TEPROTUMUMAB-TRBW
     Dosage: 1954 MILLIGRAM, Q3WK (FIFTH INFUSION)
     Route: 040
     Dates: start: 20220919
  6. TEPEZZA [Suspect]
     Active Substance: TEPROTUMUMAB-TRBW
     Dosage: 1954 MILLIGRAM, Q3WK (SIXTH INFUSION)
     Route: 042
     Dates: start: 20221010
  7. TEPEZZA [Suspect]
     Active Substance: TEPROTUMUMAB-TRBW
     Dosage: 1954 MILLIGRAM, Q3WK ( SEVENTH INFUSION)
     Route: 042
     Dates: start: 20221105
  8. TEPEZZA [Suspect]
     Active Substance: TEPROTUMUMAB-TRBW
     Dosage: 1954 MILLIGRAM, Q3WK (EIGHTH INFUSION)
     Route: 042
     Dates: start: 20221110
  9. PREDNISONE [Suspect]
     Active Substance: PREDNISONE
     Indication: Product used for unknown indication
     Dosage: 10 MILLIGRAM, QD
     Route: 048
  10. PREDNISONE [Suspect]
     Active Substance: PREDNISONE
     Dosage: 20 MILLIGRAM, QD
     Route: 048
  11. PREDNISONE [Suspect]
     Active Substance: PREDNISONE
     Dosage: 40 MILLIGRAM, QD (DOSE INCREASED)
     Route: 048
  12. AIMOVIG [Suspect]
     Active Substance: ERENUMAB\ERENUMAB-AOOE
     Indication: Product used for unknown indication
     Dosage: 70 MILLIGRAM PER MILLILITRE, QMO
     Route: 058
  13. GENTEAL TEARS [Concomitant]
     Active Substance: DEXTRAN 70\HYPROMELLOSE 2910 (4000 MPA.S)
     Dosage: 0.1-0.2-0.3% SOLUTION 1 DROP
     Route: 047
  14. MEDROL [Concomitant]
     Active Substance: METHYLPREDNISOLONE
     Dosage: 6 TABLETS ON DAY 1, DECREASING BY 1 TABLET LESS EACH DAY UNTIL FINISHED ORALLY
     Route: 048
  15. LOTEMAX [Concomitant]
     Active Substance: LOTEPREDNOL ETABONATE
     Dosage: UNK UNK, BID
     Route: 047
  16. LEVOTHYROXINE [Concomitant]
     Active Substance: LEVOTHYROXINE
  17. CANDESARTAN CILEXETIL [Concomitant]
     Active Substance: CANDESARTAN CILEXETIL
     Dosage: 16 MILLIGRAM, QD
     Route: 048
  18. CANDESARTAN CILEXETIL [Concomitant]
     Active Substance: CANDESARTAN CILEXETIL
     Dosage: 4 UNK
     Route: 048
  19. VALIUM [Concomitant]
     Active Substance: DIAZEPAM
     Dosage: 10 MG, QD
     Route: 048
  20. PANTOPRAZOLE SODIUM [Concomitant]
     Active Substance: PANTOPRAZOLE SODIUM
     Dosage: 40 MG, QD
     Route: 048
  21. PRED FORTE [Concomitant]
     Active Substance: PREDNISOLONE ACETATE
     Dosage: 1 DROP INTO BOTH EYES
     Route: 047
  22. SYNTHROID [Concomitant]
     Active Substance: LEVOTHYROXINE SODIUM
     Dosage: 37 MG, QD
     Route: 065
  23. SYNTHROID [Concomitant]
     Active Substance: LEVOTHYROXINE SODIUM
     Dosage: 137 MICROGRAM
     Route: 048
  24. SYNTHROID [Concomitant]
     Active Substance: LEVOTHYROXINE SODIUM
     Dosage: 112 MICROGRAM, QD
     Route: 048
  25. INFLUENZA VIRUS VACCINE [Concomitant]
     Active Substance: INFLUENZA VIRUS VACCINE
  26. ZOFRAN [Concomitant]
     Active Substance: ONDANSETRON HYDROCHLORIDE
     Dosage: 4 MG, EVERY 8 HOURS PRN
     Route: 048
  27. ATORVASTATIN CALCIUM [Concomitant]
     Active Substance: ATORVASTATIN CALCIUM
     Dosage: 10 MILLIGRAM, QD
     Route: 048
  28. ACEBUTOLOL [Concomitant]
     Active Substance: ACEBUTOLOL
     Dosage: 200 MILLIGRAM, QD
     Route: 048
  29. CLEOCIN T [Concomitant]
     Active Substance: CLINDAMYCIN PHOSPHATE
     Dosage: UNK UNK, BID (APPLY TO AFFECTED AREA)
     Route: 061
  30. DIPROLENE AF [Concomitant]
     Active Substance: BETAMETHASONE DIPROPIONATE
     Dosage: UNK UNK, BID
     Route: 061
  31. CARDIZEM LA [Concomitant]
     Active Substance: DILTIAZEM HYDROCHLORIDE
     Dosage: 180 MILLIGRAM, QD
     Route: 048
  32. TYLENOL [Concomitant]
     Active Substance: ACETAMINOPHEN
     Indication: Pain
     Dosage: 300 MILLIGRAM, Q6H
     Route: 048
  33. CODEINE [Concomitant]
     Active Substance: CODEINE
     Indication: Pain
     Dosage: 30 MILLIGRAM, Q6H
     Route: 048
  34. PANTOPRAZOLE [Concomitant]
     Active Substance: PANTOPRAZOLE
     Dosage: 40 MILLIGRAM, QD
     Route: 048
  35. PRILOSEC [Concomitant]
     Active Substance: OMEPRAZOLE MAGNESIUM
     Dosage: 20 MILLIGRAM, QD
     Route: 048
  36. UBRELVY [Concomitant]
     Active Substance: UBROGEPANT
     Dosage: 100 MILLIGRAM, QD
     Route: 048
  37. PROTONIX [Concomitant]
     Active Substance: PANTOPRAZOLE SODIUM
     Dosage: 40 MILLIGRAM, QD
     Route: 048
  38. GLYCOPYRROLATE [Concomitant]
     Active Substance: GLYCOPYRROLATE
     Dosage: 1 MILLIGRAM, QD
     Route: 048
     Dates: end: 20220510
  39. ALBUTEROL [Concomitant]
     Active Substance: ALBUTEROL
  40. TOBRAMYCIN [Concomitant]
     Active Substance: TOBRAMYCIN\TOBRAMYCIN SULFATE
     Route: 047
  41. TOBRADEX [Concomitant]
     Active Substance: DEXAMETHASONE\TOBRAMYCIN
     Dosage: UNK UNK, TID
     Route: 047

REACTIONS (52)
  - Deafness neurosensory [Unknown]
  - Disability [Unknown]
  - Physical disability [Not Recovered/Not Resolved]
  - Emotional distress [Unknown]
  - Condition aggravated [Unknown]
  - Anxiety [Unknown]
  - Discomfort [Unknown]
  - Impaired quality of life [Unknown]
  - Pain [Not Recovered/Not Resolved]
  - Injury [Not Recovered/Not Resolved]
  - Eye irritation [Not Recovered/Not Resolved]
  - Peripheral swelling [Not Recovered/Not Resolved]
  - Eye pain [Not Recovered/Not Resolved]
  - Vision blurred [Not Recovered/Not Resolved]
  - Periorbital swelling [Not Recovered/Not Resolved]
  - Blood pressure increased [Unknown]
  - Product quality issue [Unknown]
  - Abdominal pain upper [Unknown]
  - Decreased appetite [Unknown]
  - Dizziness [Unknown]
  - Nausea [Unknown]
  - Tinnitus [Unknown]
  - Diplopia [Not Recovered/Not Resolved]
  - Photophobia [Not Recovered/Not Resolved]
  - Strabismus [Unknown]
  - Economic problem [Unknown]
  - Lacrimation increased [Not Recovered/Not Resolved]
  - Product use in unapproved therapeutic environment [Unknown]
  - Dehydration [Unknown]
  - Abdominal discomfort [Unknown]
  - Head injury [Unknown]
  - Night sweats [Unknown]
  - Fatigue [Unknown]
  - Sinusitis [Unknown]
  - Headache [Unknown]
  - Rash pruritic [Unknown]
  - Anaemia [Unknown]
  - Malaise [Unknown]
  - Migraine [Unknown]
  - Rectal fissure [Unknown]
  - Ingrowing nail [Unknown]
  - Neck pain [Unknown]
  - Peripheral swelling [Unknown]
  - Insomnia [Unknown]
  - Low density lipoprotein increased [Unknown]
  - White blood cell count decreased [Unknown]
  - Glycosylated haemoglobin increased [Unknown]
  - Blood thyroid stimulating hormone decreased [Unknown]
  - Blood chloride increased [Unknown]
  - Blood glucose increased [Unknown]
  - Protein total decreased [Unknown]
  - Inappropriate schedule of product administration [Unknown]

NARRATIVE: CASE EVENT DATE: 20211104
